FAERS Safety Report 8119862-X (Version None)
Quarter: 2012Q1

REPORT INFORMATION
  Report Type: 
  Country: None (occurrence: None)
  Receive Date: 20120206
  Receipt Date: 20120206
  Transmission Date: 20120608
  Serious: No
  Sender: FDA-Public Use
  Company Number: None

PATIENT
  Age: 52 Year
  Sex: Male
  Weight: 65.7716 kg

DRUGS (1)
  1. SULFAMETHOXAZOLE AND TRIMETHOPRIM [Suspect]
     Indication: ACUTE SINUSITIS
     Dosage: 1 TABLET 2 TWICE DAILY
     Dates: start: 20100110

REACTIONS (1)
  - RASH [None]
